FAERS Safety Report 15888383 (Version 2)
Quarter: 2019Q1

REPORT INFORMATION
  Report Type: Spontaneous
  Country: DE (occurrence: DE)
  Receive Date: 20190130
  Receipt Date: 20190308
  Transmission Date: 20190417
  Serious: Yes (Other)
  Sender: FDA-Public Use
  Company Number: PHHY2019DE014202

PATIENT
  Age: 60 Year
  Sex: Male
  Weight: 80 kg

DRUGS (12)
  1. METOPROLOL. [Concomitant]
     Active Substance: METOPROLOL
     Dosage: 95 MG, Q12H
     Route: 065
     Dates: start: 20081111, end: 20190103
  2. DEXAMETHASONE. [Suspect]
     Active Substance: DEXAMETHASONE
     Indication: PLASMA CELL MYELOMA
     Dosage: 20 MG, CYCLIC
     Route: 042
     Dates: start: 20190103
  3. DEXAMETHASONE. [Suspect]
     Active Substance: DEXAMETHASONE
     Dosage: 20 MG, UNK
     Route: 042
     Dates: start: 20190103
  4. SAR 650984 [Suspect]
     Active Substance: ISATUXIMAB
     Indication: PLASMA CELL MYELOMA
     Dosage: 900 MG, CYCLIC
     Route: 042
     Dates: start: 20190103, end: 20190103
  5. BORTEZOMIB. [Suspect]
     Active Substance: BORTEZOMIB
     Indication: PLASMA CELL MYELOMA
     Dosage: (QCY)2.6 MG, CYCLIC
     Route: 058
     Dates: start: 20190103
  6. BORTEZOMIB. [Suspect]
     Active Substance: BORTEZOMIB
     Dosage: 1.3 MG/M2, UNK
     Route: 058
     Dates: start: 20190103
  7. LENALIDOMIDE [Suspect]
     Active Substance: LENALIDOMIDE
     Indication: PLASMA CELL MYELOMA
     Dosage: 25 MG, QD
     Route: 048
  8. METOPROLOL. [Concomitant]
     Active Substance: METOPROLOL
     Indication: HYPERTONIA
     Dosage: 95 MG, QD
     Route: 065
     Dates: start: 20081111, end: 20190103
  9. OXYCODAN [Concomitant]
     Indication: PAIN
     Dosage: 5 MG, QID (6 HOUR)
     Route: 065
     Dates: end: 20190103
  10. ALENDRON SANDOZ [Concomitant]
     Indication: PROPHYLAXIS
     Dosage: 70 MG, QW
     Route: 065
     Dates: end: 20190103
  11. SAR 650984 [Suspect]
     Active Substance: ISATUXIMAB
     Dosage: 10 MG/KG, UNK
     Route: 042
     Dates: start: 20190103
  12. OMEPRAZOLE. [Concomitant]
     Active Substance: OMEPRAZOLE
     Indication: GASTRITIS
     Dosage: 40 MG, QD
     Route: 065
     Dates: end: 20190103

REACTIONS (1)
  - Chills [Recovered/Resolved]

NARRATIVE: CASE EVENT DATE: 20190103
